FAERS Safety Report 7831952-5 (Version None)
Quarter: 2011Q4

REPORT INFORMATION
  Report Type: 
  Country: None (occurrence: None)
  Receive Date: 20111021
  Receipt Date: 20111013
  Transmission Date: 20120403
  Serious: Yes (Life-Threatening, Hospitalization, Other)
  Sender: FDA-Public Use
  Company Number: US-RB-032957-11

PATIENT
  Age: 43 Year
  Sex: Male

DRUGS (2)
  1. SUBOXONE [Suspect]
     Indication: DRUG DEPENDENCE
     Dosage: UNKNOWN
     Route: 065
  2. ALBUTEROL INHALER [Concomitant]
     Indication: ASTHMA
     Dosage: UNKNOWN
     Route: 065

REACTIONS (4)
  - MYOCARDIAL INFARCTION [None]
  - RESPIRATORY FAILURE [None]
  - CONDITION AGGRAVATED [None]
  - ASTHMA [None]
